FAERS Safety Report 13977880 (Version 2)
Quarter: 2024Q1

REPORT INFORMATION
  Report Type: Spontaneous
  Country: ES (occurrence: ES)
  Receive Date: 20170915
  Receipt Date: 20240311
  Transmission Date: 20240410
  Serious: Yes (Hospitalization, Other)
  Sender: FDA-Public Use
  Company Number: ES-PFIZER INC-2013234154

PATIENT
  Age: 3 Year
  Sex: Male

DRUGS (2)
  1. MEROPENEM [Suspect]
     Active Substance: MEROPENEM
     Indication: Meningitis
     Dosage: 40 MG/KG, 3X/DAY
     Route: 042
  2. MEROPENEM [Suspect]
     Active Substance: MEROPENEM
     Indication: Morganella infection
     Dosage: 100 MG/KG, 3X/DAY
     Route: 042

REACTIONS (3)
  - Febrile bone marrow aplasia [Recovered/Resolved with Sequelae]
  - Overdose [Recovered/Resolved with Sequelae]
  - Hepatic function abnormal [Recovered/Resolved with Sequelae]
